FAERS Safety Report 7508765-7 (Version None)
Quarter: 2011Q2

REPORT INFORMATION
  Report Type: 
  Country: None (occurrence: None)
  Receive Date: 20110527
  Receipt Date: 20110118
  Transmission Date: 20111010
  Serious: No
  Sender: FDA-Public Use
  Company Number: A0906900A

PATIENT
  Age: 5 Month
  Sex: Female

DRUGS (2)
  1. VENTOLIN [Suspect]
     Indication: RESPIRATORY SYNCYTIAL VIRUS INFECTION
     Dosage: 2PUFF AS REQUIRED
     Route: 055
     Dates: start: 20110101
  2. MOTRIN [Concomitant]

REACTIONS (1)
  - RASH [None]
